FAERS Safety Report 24989324 (Version 1)
Quarter: 2025Q1

REPORT INFORMATION
  Report Type: Spontaneous
  Country: US (occurrence: US)
  Receive Date: 20250220
  Receipt Date: 20250220
  Transmission Date: 20250409
  Serious: No
  Sender: MACLEODS
  Company Number: US-MACLEODS PHARMA-MAC2025051686

PATIENT

DRUGS (1)
  1. CLOPIDOGREL [Suspect]
     Active Substance: CLOPIDOGREL BISULFATE
     Indication: Transient ischaemic attack
     Dosage: NDC: 16714-052-03
     Route: 048
     Dates: start: 20241208, end: 20250125

REACTIONS (4)
  - Amnesia [Unknown]
  - Abdominal pain upper [Unknown]
  - Arthralgia [Unknown]
  - Pruritus [Unknown]
